FAERS Safety Report 19611056 (Version 3)
Quarter: 2021Q3

REPORT INFORMATION
  Report Type: Report from Study
  Country: CN (occurrence: CN)
  Receive Date: 20210726
  Receipt Date: 20210902
  Transmission Date: 20211014
  Serious: Yes (Hospitalization)
  Sender: FDA-Public Use
  Company Number: CN-ALLERGAN-2126070US

PATIENT
  Sex: Male
  Weight: 77 kg

DRUGS (10)
  1. DEX 0.7MG INS (9632X) [Suspect]
     Active Substance: DEXAMETHASONE
     Indication: MACULAR OEDEMA
     Dosage: 0.7 MG, SINGLE
     Route: 031
     Dates: start: 20200609, end: 20200609
  2. METOPROLOL TARTRATE. [Concomitant]
     Active Substance: METOPROLOL TARTRATE
     Indication: HYPERTENSION
     Dosage: 12.5 MG, BID
     Route: 048
     Dates: start: 202003
  3. IODIZED LECITHIN [Concomitant]
     Active Substance: JOLETHIN
     Indication: POSTOPERATIVE CARE
     Dosage: 1 DF(PILL), TID
     Route: 048
     Dates: start: 20210714
  4. NIFEDIPINE. [Concomitant]
     Active Substance: NIFEDIPINE
     Indication: HYPERTENSION
     Dosage: 10 MG, BID
     Route: 048
     Dates: start: 202003
  5. PREDNISOLONE ACETATE. [Concomitant]
     Active Substance: PREDNISOLONE ACETATE
     Indication: POSTOPERATIVE CARE
     Dosage: 1 GTT, QID, REDUCED ONCE A WEEK
     Route: 047
     Dates: start: 20210714
  6. COMPOUND TROPICAMIDE [Concomitant]
     Indication: POSTOPERATIVE CARE
     Dosage: 1 GTT, TID
     Route: 047
     Dates: start: 20210714
  7. DICLOFENAC SODIUM. [Concomitant]
     Active Substance: DICLOFENAC SODIUM
     Indication: GOUT
     Dosage: 75 MG, PRN
     Route: 048
     Dates: start: 2017
  8. TOBRAMYCIN AND DEXAMETHASONE [Concomitant]
     Active Substance: DEXAMETHASONE\TOBRAMYCIN
     Indication: POSTOPERATIVE CARE
     Dosage: 1 DF(CM), QHS
     Route: 047
     Dates: start: 20210714
  9. LEVOFLOXACIN HYDROCHLORIDE [Concomitant]
     Active Substance: LEVOFLOXACIN HYDROCHLORIDE
     Indication: POSTOPERATIVE CARE
     Dosage: 1 GTT, QID
     Route: 047
     Dates: start: 20210713
  10. ADENOSINE DISODIUM TRIPHOSPHATE [Concomitant]
     Indication: POSTOPERATIVE CARE
     Dosage: 1 DF(PILL), TID
     Route: 048
     Dates: start: 20210714

REACTIONS (3)
  - Macular hole [Recovered/Resolved]
  - Cataract nuclear [Recovered/Resolved]
  - Macular fibrosis [Recovered/Resolved]

NARRATIVE: CASE EVENT DATE: 20210712
